FAERS Safety Report 4503891-9 (Version None)
Quarter: 2004Q4

REPORT INFORMATION
  Report Type: 
  Country: None (occurrence: None)
  Receive Date: 20040928
  Receipt Date: 20040615
  Transmission Date: 20050328
  Serious: No
  Sender: FDA-Public Use
  Company Number: 04P-163-0263826-00

PATIENT
  Age: 58 Year
  Sex: Female
  Weight: 61.2356 kg

DRUGS (6)
  1. HUMIRA [Suspect]
     Indication: RHEUMATOID ARTHRITIS
     Dosage: 40 MG, 1 IN 2 WK, SUBCUTANEOUS
     Route: 058
     Dates: start: 20040516
  2. DOXYCYCLINE [Concomitant]
  3. HERBAL MEDICATIONS [Concomitant]
  4. METOPROLOL SUCCINATE [Concomitant]
  5. FLECAINIDE ACETATE [Concomitant]
  6. TELMISARTAN [Concomitant]

REACTIONS (4)
  - ABDOMINAL DISTENSION [None]
  - DRUG INEFFECTIVE [None]
  - INJECTION SITE BURNING [None]
  - WEIGHT INCREASED [None]
